FAERS Safety Report 8497392 (Version 2)
Quarter: 2013Q2

REPORT INFORMATION
  Report Type: Spontaneous
  Country: US (occurrence: None)
  Receive Date: 20120327
  Receipt Date: 20120709
  Transmission Date: 20140414
  Serious: Yes (Other)
  Sender: FDA-Public Use
  Company Number: PHHY2011US36604

PATIENT
  Age: 32 Year
  Sex: Male
  Weight: 95.2 kg

DRUGS (2)
  1. GLEEVEC [Suspect]
     Indication: EOSINOPHILIC FASCIITIS
     Dosage: 400 MG, QD, ORAL
     Route: 048
     Dates: start: 20090601
  2. GLEEVEC [Suspect]
     Indication: HYPEREOSINOPHILIC SYNDROME
     Dosage: 400 MG, QD, ORAL
     Route: 048
     Dates: start: 20090601

REACTIONS (2)
  - WEIGHT INCREASED [None]
  - WEIGHT DECREASED [None]
